FAERS Safety Report 9331890 (Version 1)
Quarter: 2013Q2

REPORT INFORMATION
  Report Type: Spontaneous
  Country: US (occurrence: US)
  Receive Date: 20130605
  Receipt Date: 20130605
  Transmission Date: 20140414
  Serious: Yes (Hospitalization, Other)
  Sender: FDA-Public Use
  Company Number: US-009507513-1306USA000901

PATIENT
  Sex: Female
  Weight: 91.16 kg

DRUGS (1)
  1. IMPLANON [Suspect]
     Indication: CONTRACEPTION
     Dosage: 68MG/1 ROD EVERY 3 YEARS
     Route: 059
     Dates: start: 20110817, end: 20130515

REACTIONS (11)
  - Myocardial infarction [Unknown]
  - Hospitalisation [Unknown]
  - Chest pain [Not Recovered/Not Resolved]
  - Haemorrhage [Unknown]
  - Weight increased [Unknown]
  - Dyspnoea [Unknown]
  - Menstruation delayed [Not Recovered/Not Resolved]
  - Pain in extremity [Not Recovered/Not Resolved]
  - Abdominal pain [Not Recovered/Not Resolved]
  - Hypertension [Not Recovered/Not Resolved]
  - Electrocardiogram abnormal [Not Recovered/Not Resolved]
